FAERS Safety Report 10191324 (Version 2)
Quarter: 2014Q2

REPORT INFORMATION
  Report Type: Spontaneous
  Country: BR (occurrence: BR)
  Receive Date: 20140523
  Receipt Date: 20140606
  Transmission Date: 20141212
  Serious: Yes (Hospitalization, Other)
  Sender: FDA-Public Use
  Company Number: BR-SA-2014SA062083

PATIENT
  Age: 61 Year
  Sex: Female
  Weight: 49 kg

DRUGS (4)
  1. LANTUS [Suspect]
     Indication: TYPE 2 DIABETES MELLITUS
     Route: 058
     Dates: start: 2009
  2. APIDRA SOLOSTAR [Suspect]
     Indication: TYPE 2 DIABETES MELLITUS
     Dosage: NI IU^S DAILY ACCORDING TO THE BLOOD GLUCOSE LEVEL
     Route: 058
  3. HYDROCHLOROTHIAZIDE [Concomitant]
     Indication: BLOOD PRESSURE
     Route: 048
  4. LOSARTAN [Concomitant]
     Indication: BLOOD PRESSURE
     Route: 048

REACTIONS (6)
  - Head injury [Recovered/Resolved]
  - Diabetes mellitus inadequate control [Recovered/Resolved]
  - Visual impairment [Recovered/Resolved]
  - Loss of consciousness [Recovered/Resolved]
  - Fall [Unknown]
  - Blood glucose decreased [Recovered/Resolved]
